FAERS Safety Report 7767981-X (Version None)
Quarter: 2011Q3

REPORT INFORMATION
  Report Type: 
  Country: None (occurrence: None)
  Receive Date: 20110922
  Receipt Date: 20101004
  Transmission Date: 20111222
  Serious: No
  Sender: FDA-Public Use
  Company Number: US-ASTRAZENECA-2010SE46971

PATIENT
  Sex: Male

DRUGS (1)
  1. SEROQUEL [Suspect]
     Route: 048

REACTIONS (6)
  - LETHARGY [None]
  - FAECAL INCONTINENCE [None]
  - DRUG DOSE OMISSION [None]
  - HEADACHE [None]
  - VISION BLURRED [None]
  - MUSCLE SPASMS [None]
